FAERS Safety Report 9945820 (Version 1)
Quarter: 2014Q1

REPORT INFORMATION
  Report Type: Report from Study
  Country: US (occurrence: US)
  Receive Date: 20140303
  Receipt Date: 20140303
  Transmission Date: 20141002
  Serious: No
  Sender: FDA-Public Use
  Company Number: US-ABBVIE-13P-163-1050767-00

PATIENT
  Sex: Female

DRUGS (1)
  1. HUMIRA [Suspect]
     Indication: CROHN^S DISEASE
     Dosage: 160MG 1ST DOSE, 80MG 2 WEEKS LATER, 40MG 2 WEEKS LATER
     Route: 058
     Dates: start: 20130125

REACTIONS (1)
  - Nausea [Unknown]
